FAERS Safety Report 19906004 (Version 3)
Quarter: 2022Q3

REPORT INFORMATION
  Report Type: Spontaneous
  Country: CA (occurrence: CA)
  Receive Date: 20211001
  Receipt Date: 20220708
  Transmission Date: 20221027
  Serious: Yes (Hospitalization)
  Sender: FDA-Public Use
  Company Number: CA-SAMSUNG BIOEPIS-SB-2021-23148

PATIENT
  Age: 25 Year
  Sex: Female
  Weight: 79 kg

DRUGS (6)
  1. INFLIXIMAB [Suspect]
     Active Substance: INFLIXIMAB
     Indication: Crohn^s disease
     Route: 042
  2. DIPHTHERIA TOXOID ADSORBED/PERTUSSIS VACCINE ACELLULAR 5- COMPONENT/TE [Concomitant]
     Indication: Immunisation
     Dosage: UNKNOWN
     Route: 065
  3. MENINGOCOCCAL VACCINE A/C/Y/W CONJ (TET TOX) [Concomitant]
     Indication: Immunisation
     Dosage: UNKNOWN
     Route: 065
  4. MENINGOCOCCAL VACCINE B RFHBP/NADA/NHBA OMV [Concomitant]
     Indication: Immunisation
     Dosage: UNKNOWN
     Route: 065
  5. PREDNISONE [Concomitant]
     Active Substance: PREDNISONE
     Indication: Crohn^s disease
     Dosage: UNKNOWN
     Route: 065
  6. PREVNAR 13 [Concomitant]
     Active Substance: PNEUMOCOCCAL 13-VALENT CONJUGATE VACCINE
     Indication: Immunisation
     Dosage: UNKNOWN, SUSPENSION INTRAMUSCULAR
     Route: 065

REACTIONS (15)
  - Condition aggravated [Not Recovered/Not Resolved]
  - Eczema [Not Recovered/Not Resolved]
  - Ear infection [Not Recovered/Not Resolved]
  - Fatigue [Not Recovered/Not Resolved]
  - Heart rate increased [Not Recovered/Not Resolved]
  - Infection [Not Recovered/Not Resolved]
  - Lymphoedema [Not Recovered/Not Resolved]
  - Mania [Not Recovered/Not Resolved]
  - Weight increased [Not Recovered/Not Resolved]
  - Maternal exposure during pregnancy [Not Recovered/Not Resolved]
  - Therapeutic response shortened [Not Recovered/Not Resolved]
  - Drug level decreased [Not Recovered/Not Resolved]
  - Intentional product use issue [Not Recovered/Not Resolved]
  - Inappropriate schedule of product administration [Not Recovered/Not Resolved]
  - Off label use [Not Recovered/Not Resolved]
